FAERS Safety Report 9164685 (Version 2)
Quarter: 2013Q1

REPORT INFORMATION
  Report Type: Spontaneous
  Country: GB (occurrence: None)
  Receive Date: 20130226
  Receipt Date: 20130315
  Transmission Date: 20140127
  Serious: Yes (Hospitalization)
  Sender: FDA-Public Use
  Company Number: AUR-APL-2012-05218

PATIENT
  Age: 46 Year
  Sex: Female
  Weight: 58 kg

DRUGS (7)
  1. RIBAVIRIN [Suspect]
     Indication: HEPATITIS C
     Dosage: (400 MG, 1 D), ORAL
     Route: 048
     Dates: start: 20120814
  2. TELAPREVIR [Suspect]
     Indication: HEPATITIS C
     Dosage: 2250 MG (750 MG, 3 IN 1 D), ORAL
     Route: 048
     Dates: start: 20120814, end: 20121023
  3. METHADONE (METHADONE) [Concomitant]
  4. MIRTAZAPINE (MIRTAZAPINE) [Concomitant]
  5. PEGINTERFERON ALFA-2B (PEGINTERFERON ALFA-2B) [Concomitant]
  6. QUETIAPINE (QUETIAPINE) (QUETIAPINE) [Concomitant]
  7. TRAMADOL (TRAMADOL) [Concomitant]

REACTIONS (1)
  - Anaemia [None]
